FAERS Safety Report 21229117 (Version 1)
Quarter: 2022Q3

REPORT INFORMATION
  Report Type: Report from Study
  Country: US (occurrence: US)
  Receive Date: 20220818
  Receipt Date: 20220818
  Transmission Date: 20221027
  Serious: Yes (Other)
  Sender: FDA-Public Use
  Company Number: US-EXELIXIS-CABO-22054993

PATIENT
  Age: 74 Year
  Sex: Male
  Weight: 92.063 kg

DRUGS (1)
  1. CABOMETYX [Suspect]
     Active Substance: CABOZANTINIB S-MALATE
     Indication: Renal cell carcinoma
     Dosage: 60 MG, QD
     Route: 048

REACTIONS (7)
  - Pericardial effusion [Recovering/Resolving]
  - Blood pressure fluctuation [Recovering/Resolving]
  - Eructation [Recovering/Resolving]
  - Visual impairment [Recovering/Resolving]
  - Rash macular [Recovering/Resolving]
  - Asthenia [Recovering/Resolving]
  - Fatigue [Recovering/Resolving]

NARRATIVE: CASE EVENT DATE: 20220811
